FAERS Safety Report 8274971-X (Version None)
Quarter: 2012Q2

REPORT INFORMATION
  Report Type: 
  Country: None (occurrence: None)
  Receive Date: 20120411
  Receipt Date: 20120406
  Transmission Date: 20120825
  Serious: Yes (Other)
  Sender: FDA-Public Use
  Company Number: US-ROCHE-1057787

PATIENT
  Sex: Female

DRUGS (1)
  1. XELODA [Suspect]
     Indication: OESOPHAGEAL CARCINOMA

REACTIONS (4)
  - ASTHENIA [None]
  - DEHYDRATION [None]
  - SUICIDAL IDEATION [None]
  - DIARRHOEA [None]
